FAERS Safety Report 4756324-1 (Version None)
Quarter: 2005Q3

REPORT INFORMATION
  Report Type: 
  Country: None (occurrence: None)
  Receive Date: 20050830
  Receipt Date: 20050531
  Transmission Date: 20060218
  Serious: No
  Sender: FDA-Public Use
  Company Number: US-GLAXOSMITHKLINE-A0560591A

PATIENT
  Age: 60 Year
  Sex: Female
  Weight: 100 kg

DRUGS (13)
  1. WELLBUTRIN XL [Suspect]
     Indication: DEPRESSION
     Dosage: 150MG PER DAY
     Route: 048
     Dates: start: 20050513, end: 20050527
  2. XANAX [Concomitant]
  3. LEXAPRO [Concomitant]
  4. AMBIEN [Concomitant]
  5. NEURONTIN [Concomitant]
  6. LANTUS [Concomitant]
  7. TOPAMAX [Concomitant]
  8. ACTOS [Concomitant]
  9. HUMALOG [Concomitant]
  10. AVAPRO [Concomitant]
  11. PROTONIX [Concomitant]
  12. HYPOSTAMINE [Concomitant]
  13. TRICOR [Concomitant]

REACTIONS (3)
  - ARTHRALGIA [None]
  - FALL [None]
  - MYALGIA [None]
